FAERS Safety Report 8313604-0 (Version None)
Quarter: 2012Q2

REPORT INFORMATION
  Report Type: 
  Country: None (occurrence: None)
  Receive Date: 20120426
  Receipt Date: 20120418
  Transmission Date: 20120825
  Serious: Yes (Other)
  Sender: FDA-Public Use
  Company Number: GB-UCBSA-055680

PATIENT
  Age: 65 Year
  Sex: Male

DRUGS (8)
  1. ALENDRONATE SODIUM [Concomitant]
  2. ADCAL-D3 [Concomitant]
  3. PARACETAMOL [Concomitant]
  4. FOLIC ACID [Concomitant]
  5. LISINOPRIL [Concomitant]
  6. CIMZIA [Suspect]
     Indication: RHEUMATOID ARTHRITIS
     Route: 058
     Dates: start: 20110501, end: 20111201
  7. METHOTREXATE [Concomitant]
     Dates: start: 20000101
  8. PREDNISOLONE [Concomitant]

REACTIONS (4)
  - LUPUS-LIKE SYNDROME [None]
  - VASCULITIC RASH [None]
  - SKIN LESION [None]
  - RAYNAUD'S PHENOMENON [None]
